FAERS Safety Report 9208954 (Version 3)
Quarter: 2014Q3

REPORT INFORMATION
  Report Type: Spontaneous
  Country: US (occurrence: None)
  Receive Date: 20120817
  Receipt Date: 20140815
  Transmission Date: 20150326
  Serious: Yes (Hospitalization, Other)
  Sender: FDA-Public Use
  Company Number: ADR-2012-00986

PATIENT
  Sex: Male

DRUGS (4)
  1. BACLOFEN INTRATHECAL (BACLOFEN INJECTION) [Suspect]
     Active Substance: BACLOFEN
  2. BACLOFEN INTRATHECAL (BACLOFEN INJECTION) [Suspect]
     Active Substance: BACLOFEN
     Indication: MUSCLE SPASTICITY
  3. MORPHINE [Concomitant]
     Active Substance: MORPHINE
  4. BUPIVACAINE [Concomitant]
     Active Substance: BUPIVACAINE

REACTIONS (11)
  - Mental status changes [None]
  - Muscle spasticity [None]
  - Generalised tonic-clonic seizure [None]
  - Malaise [None]
  - Drug withdrawal syndrome [None]
  - Convulsion [None]
  - Hypertension [None]
  - No therapeutic response [None]
  - Wound [None]
  - Unresponsive to stimuli [None]
  - Pain [None]
